FAERS Safety Report 8573620 (Version 2)
Quarter: 2013Q1

REPORT INFORMATION
  Report Type: Spontaneous
  Country: DE (occurrence: DE)
  Receive Date: 20120522
  Receipt Date: 20130122
  Transmission Date: 20140127
  Serious: Yes (Hospitalization)
  Sender: FDA-Public Use
  Company Number: DE-ROCHE-1070513

PATIENT
  Age: 0 Year
  Sex: Female
  Weight: 9.5 kg

DRUGS (3)
  1. XOLAIR [Suspect]
     Indication: MATERNAL EXPOSURE TIMING UNSPECIFIED
     Route: 065
     Dates: start: 200910
  2. XOLAIR [Suspect]
     Route: 064
     Dates: start: 20101003, end: 201011
  3. XOLAIR [Suspect]
     Route: 064
     Dates: start: 20120508

REACTIONS (2)
  - Premature baby [Unknown]
  - Foetal exposure during pregnancy [Unknown]
